FAERS Safety Report 6265697-2 (Version None)
Quarter: 2009Q3

REPORT INFORMATION
  Report Type: 
  Country: None (occurrence: None)
  Receive Date: 20090713
  Receipt Date: 20090327
  Transmission Date: 20100115
  Serious: No
  Sender: FDA-Public Use
  Company Number: US-BAYER-200917170NA

PATIENT
  Age: 30 Year
  Sex: Female
  Weight: 109 kg

DRUGS (5)
  1. YAZ [Suspect]
     Indication: CONTRACEPTION
     Route: 048
     Dates: start: 20071001
  2. EFFEXOR [Concomitant]
  3. REPROVA-IRON SUPP [Concomitant]
  4. AMBIEN [Concomitant]
  5. ATELOL [Concomitant]

REACTIONS (1)
  - AMENORRHOEA [None]
